FAERS Safety Report 8064868-2 (Version None)
Quarter: 2012Q1

REPORT INFORMATION
  Report Type: 
  Country: None (occurrence: None)
  Receive Date: 20120124
  Receipt Date: 20120111
  Transmission Date: 20120608
  Serious: No
  Sender: FDA-Public Use
  Company Number: US-BIOGENIDEC-2012BI001446

PATIENT
  Sex: Male
  Weight: 108 kg

DRUGS (2)
  1. TYSABRI [Suspect]
     Indication: CROHN'S DISEASE
     Route: 042
     Dates: start: 20100921
  2. HYDROCORTISONE [Concomitant]
     Route: 042

REACTIONS (1)
  - ARTHRALGIA [None]
